FAERS Safety Report 22165757 (Version 1)
Quarter: 2023Q2

REPORT INFORMATION
  Report Type: Spontaneous
  Country: US (occurrence: US)
  Receive Date: 20230403
  Receipt Date: 20230403
  Transmission Date: 20230722
  Serious: No
  Sender: FDA-Public Use
  Company Number: US-CIPLA LTD.-2022US06816

PATIENT

DRUGS (1)
  1. SERTRALINE [Suspect]
     Active Substance: SERTRALINE HYDROCHLORIDE
     Indication: Product used for unknown indication
     Dosage: UNK
     Route: 065

REACTIONS (6)
  - Product dose omission issue [Unknown]
  - Therapy non-responder [Unknown]
  - Product use issue [Unknown]
  - Nausea [Unknown]
  - Dizziness [Unknown]
  - Diarrhoea [Unknown]
